FAERS Safety Report 4758942-3 (Version None)
Quarter: 2005Q3

REPORT INFORMATION
  Report Type: 
  Country: None (occurrence: None)
  Receive Date: 20050826
  Receipt Date: 20050818
  Transmission Date: 20060218
  Serious: Yes (Other)
  Sender: FDA-Public Use
  Company Number: 2005093497

PATIENT
  Age: 48 Year
  Sex: Female
  Weight: 151.0478 kg

DRUGS (7)
  1. CELEBREX [Suspect]
     Indication: OSTEOARTHRITIS
     Dosage: 400 MG (200 MG, 2 IN 1 D), ORAL
     Route: 048
     Dates: start: 20030101
  2. TOPIRAMATE [Concomitant]
  3. FLUOXETINE [Concomitant]
  4. CLONAZEPAM [Concomitant]
  5. DOCUSATE SODIUM (DOCUSATE SODIUM) [Concomitant]
  6. VALTREX [Concomitant]
  7. PSYLLIUM HUSK (ISPAGHULA HUSK) [Concomitant]

REACTIONS (4)
  - CHOLECYSTITIS [None]
  - INCORRECT DOSE ADMINISTERED [None]
  - ROSACEA [None]
  - WEIGHT FLUCTUATION [None]
